FAERS Safety Report 6692385-0 (Version None)
Quarter: 2010Q2

REPORT INFORMATION
  Report Type: 
  Country: None (occurrence: None)
  Receive Date: 20100422
  Receipt Date: 20100414
  Transmission Date: 20101027
  Serious: Yes (Hospitalization)
  Sender: FDA-Public Use
  Company Number: FR-KINGPHARMUSA00001-K200901514

PATIENT
  Age: 85 Year
  Sex: Female

DRUGS (12)
  1. ALTACE [Suspect]
     Indication: HYPERTENSION
     Dosage: 5 MG, BID
     Route: 048
     Dates: end: 20091015
  2. AZATHIOPRINE [Suspect]
     Indication: DERMATOMYOSITIS
     Dosage: 50 MG, BID
     Route: 048
  3. TORSEMIDE [Suspect]
     Indication: HYPERTENSION
     Dosage: 2.5 MG, QD
     Route: 048
     Dates: end: 20091015
  4. CALCIMAGON-D 3 [Concomitant]
     Dosage: UNK
  5. PREDNISOLON [Concomitant]
     Dosage: UNK
     Dates: start: 20090901
  6. FOSAMAX [Concomitant]
     Dosage: UNK
  7. PENTAERYTHRITOL TETRANITRATE [Concomitant]
     Dosage: UNK
  8. ASPIRIN [Concomitant]
     Dosage: UNK
  9. DIOVANE [Suspect]
     Indication: HYPERTENSION
     Dosage: 80 MG, QD
     Route: 048
  10. BISOPROLOL [Concomitant]
     Dosage: UNK
  11. LEVOTHYROXINE SODIUM [Concomitant]
     Dosage: UNK
  12. PANTOZOL [Concomitant]
     Dosage: UNK
     Dates: start: 20090901

REACTIONS (4)
  - HEADACHE [None]
  - HYPONATRAEMIA [None]
  - INAPPROPRIATE ANTIDIURETIC HORMONE SECRETION [None]
  - MALAISE [None]
